FAERS Safety Report 7974051-4 (Version None)
Quarter: 2011Q4

REPORT INFORMATION
  Report Type: 
  Country: None (occurrence: None)
  Receive Date: 20111213
  Receipt Date: 20111202
  Transmission Date: 20120403
  Serious: Yes (Other)
  Sender: FDA-Public Use
  Company Number: PL-GLAXOSMITHKLINE-B0768539A

PATIENT
  Age: 49 Year
  Sex: Male

DRUGS (1)
  1. PAROXETINE HCL [Suspect]
     Indication: ANXIETY
     Route: 048

REACTIONS (3)
  - SKIN CHAPPED [None]
  - HAEMORRHAGE [None]
  - DRY SKIN [None]
